FAERS Safety Report 21080516 (Version 3)
Quarter: 2022Q4

REPORT INFORMATION
  Report Type: Spontaneous
  Country: US (occurrence: US)
  Receive Date: 20220714
  Receipt Date: 20221031
  Transmission Date: 20230113
  Serious: No
  Sender: FDA-Public Use
  Company Number: US-RECKITT BENCKISER HEALTHCARE INT LIMITED-RB-00275-2021

PATIENT
  Age: 80 Year
  Sex: Male

DRUGS (1)
  1. MUCINEX DM [Suspect]
     Active Substance: DEXTROMETHORPHAN HYDROBROMIDE\GUAIFENESIN
     Indication: Product used for unknown indication
     Dosage: TOOK ONE TABLET APPROX 5:30 EST AND AGAIN ONE TABLET AT
     Route: 048
     Dates: start: 20211122

REACTIONS (1)
  - Incorrect product administration duration [Unknown]
